FAERS Safety Report 8076941-3 (Version None)
Quarter: 2012Q1

REPORT INFORMATION
  Report Type: 
  Country: None (occurrence: None)
  Receive Date: 20120127
  Receipt Date: 20120120
  Transmission Date: 20120608
  Serious: Yes (Hospitalization)
  Sender: FDA-Public Use
  Company Number: US-ABBOTT-12P-163-0895277-00

PATIENT
  Sex: Female
  Weight: 106.69 kg

DRUGS (14)
  1. INSULIN [Concomitant]
     Indication: DIABETES MELLITUS
  2. ZOLOFT [Concomitant]
     Indication: DEPRESSION
  3. ZOCOR [Concomitant]
     Indication: HYPERCHOLESTEROLAEMIA
  4. CELEBREX [Concomitant]
     Indication: PSORIATIC ARTHROPATHY
  5. ASPIRIN [Concomitant]
     Indication: PRODUCT USED FOR UNKNOWN INDICATION
  6. SIMVASTATIN [Concomitant]
     Indication: BLOOD CHOLESTEROL INCREASED
  7. FLUOCINONIDE [Concomitant]
     Indication: PSORIASIS
     Route: 061
  8. SYNTHROID [Concomitant]
     Indication: HYPOTHYROIDISM
  9. ANAPRIL [Concomitant]
     Indication: HYPERTENSION
  10. FUROSEMIDE [Concomitant]
     Indication: FLUID RETENTION
  11. ENBREL [Concomitant]
     Indication: PSORIASIS
     Dates: start: 20111001
  12. HUMIRA [Suspect]
     Indication: PSORIASIS
  13. CALCIUM [Concomitant]
     Indication: MINERAL SUPPLEMENTATION
  14. ARAVA [Concomitant]
     Indication: PSORIATIC ARTHROPATHY

REACTIONS (3)
  - PSORIASIS [None]
  - SKIN DISORDER [None]
  - DRUG INEFFECTIVE [None]
